FAERS Safety Report 13819307 (Version 1)
Quarter: 2017Q3

REPORT INFORMATION
  Report Type: Spontaneous
  Country: US (occurrence: US)
  Receive Date: 20170731
  Receipt Date: 20170731
  Transmission Date: 20171127
  Serious: Yes (Hospitalization, Disabling, Other)
  Sender: FDA-Public Use
  Company Number: None

PATIENT
  Age: 33 Year
  Sex: Male
  Weight: 155 kg

DRUGS (7)
  1. CLONAZEPAM. [Concomitant]
     Active Substance: CLONAZEPAM
  2. MEDICAL MJ [Concomitant]
  3. GABAPENTIN. [Suspect]
     Active Substance: GABAPENTIN
     Indication: MUSCLE SPASMS
     Dosage: ?          QUANTITY:90 CAPSULE(S);?
     Route: 048
  4. L-THEANINE [Concomitant]
     Active Substance: DIETARY SUPPLEMENT
  5. GABAPENTIN. [Suspect]
     Active Substance: GABAPENTIN
     Indication: PAIN
     Dosage: ?          QUANTITY:90 CAPSULE(S);?
     Route: 048
  6. DIAZEPAM. [Concomitant]
     Active Substance: DIAZEPAM
  7. ZOLPIDEM [Concomitant]
     Active Substance: ZOLPIDEM\ZOLPIDEM TARTRATE

REACTIONS (8)
  - Muscle spasms [None]
  - Loss of libido [None]
  - Asthenia [None]
  - Insomnia [None]
  - Impaired quality of life [None]
  - Mood swings [None]
  - Product quality issue [None]
  - Anhedonia [None]

NARRATIVE: CASE EVENT DATE: 20150301
